FAERS Safety Report 14486953 (Version 2)
Quarter: 2018Q1

REPORT INFORMATION
  Report Type: Spontaneous
  Country: DE (occurrence: DE)
  Receive Date: 20180205
  Receipt Date: 20180228
  Transmission Date: 20180509
  Serious: Yes (Other)
  Sender: FDA-Public Use
  Company Number: DE-PFIZER INC-2018046859

PATIENT
  Age: 31 Year
  Sex: Female
  Weight: 54 kg

DRUGS (5)
  1. PACLITAXEL. [Suspect]
     Active Substance: PACLITAXEL
     Dosage: 131.2 MG, CYCLIC (2 CYCLE MONO WEEKLY)
     Route: 042
     Dates: start: 20170418
  2. RANITIDINE. [Concomitant]
     Active Substance: RANITIDINE
     Indication: PROPHYLAXIS
     Dosage: 50 MG, UNK (30 MIN BEFORE PACLITAXEL)
     Route: 042
  3. DEXAMETHASONE. [Concomitant]
     Active Substance: DEXAMETHASONE
     Indication: PROPHYLAXIS
     Dosage: 20 MG, UNK (30 MIN BEFORE PACLITAXEL)
     Route: 042
     Dates: start: 20170418
  4. PACLITAXEL. [Suspect]
     Active Substance: PACLITAXEL
     Indication: BREAST CANCER
     Dosage: UNK, CYCLIC (1 CYCLE)
     Route: 042
     Dates: start: 20170410
  5. DIMETINDENE [Concomitant]
     Active Substance: DIMETHINDENE
     Indication: PROPHYLAXIS
     Dosage: 4 MG, UNK (30 MIN BEFORE PACLITAXEL)
     Route: 042
     Dates: start: 20170418

REACTIONS (5)
  - Respiratory distress [Recovered/Resolved]
  - Feeling hot [Recovered/Resolved]
  - Hyperaesthesia [Recovered/Resolved]
  - Flushing [Recovered/Resolved]
  - Erythema [Recovered/Resolved]

NARRATIVE: CASE EVENT DATE: 20170418
